FAERS Safety Report 13718553 (Version 1)
Quarter: 2017Q3

REPORT INFORMATION
  Report Type: Spontaneous
  Country: US (occurrence: US)
  Receive Date: 20170705
  Receipt Date: 20170705
  Transmission Date: 20171127
  Serious: Yes (Other)
  Sender: FDA-Public Use
  Company Number: US-PFIZER INC-2017286395

PATIENT
  Age: 77 Year
  Sex: Male

DRUGS (19)
  1. LYRICA [Suspect]
     Active Substance: PREGABALIN
     Dosage: 150 MG, 2X/DAY
     Route: 048
  2. NITROSTAT [Concomitant]
     Active Substance: NITROGLYCERIN
     Indication: CHEST PAIN
     Dosage: 0.4 MG, TABLET UNDER THE TONGUE EVERY 5 MINUTE AS NEEDED
     Route: 060
  3. ASPIRIN. [Concomitant]
     Active Substance: ASPIRIN
     Dosage: 81 MG, DAILY
     Route: 048
  4. ZANAFLEX [Concomitant]
     Active Substance: TIZANIDINE HYDROCHLORIDE
     Dosage: 0.5 MG BY MOUTH EVERY 8 HOURS AS NEEDED FROM 28JAN2015 (ALSO REPORTED AS, PATIENT TAKES 1/8TH OF TAB
     Route: 048
  5. DECADRON [Concomitant]
     Active Substance: DEXAMETHASONE
     Dosage: 4 MG, UNK (PATIENT TO TAKE 10 TABLET FOLLOWING HIS CHEMO INJECTION)
     Route: 048
  6. CALCIUM +D3 [Concomitant]
     Active Substance: CALCIUM\CHOLECALCIFEROL
     Dosage: UNK
     Route: 048
  7. CYTOXAN [Concomitant]
     Active Substance: CYCLOPHOSPHAMIDE
     Dosage: UNK
     Route: 048
     Dates: start: 20170406
  8. MORPHINE [Concomitant]
     Active Substance: MORPHINE
     Indication: PAIN
     Dosage: 15 MG, EVERY 6 HOURS AS NEEDED
     Route: 048
  9. OXY.IR [Concomitant]
     Indication: PAIN
     Dosage: 15 MG, EVERY 6 HOURS AS NEEDED
     Route: 048
  10. ZOMETA [Concomitant]
     Active Substance: ZOLEDRONIC ACID
     Dosage: 4 MG, UNK (INFUSE INTRAVENOUSLY)
     Route: 042
  11. PROTONIX [Concomitant]
     Active Substance: PANTOPRAZOLE SODIUM
     Dosage: 40 MG, 2 TIMES DAILY (BEFORE MEALS),
     Route: 048
  12. RYTHMOL [Concomitant]
     Active Substance: PROPAFENONE HYDROCHLORIDE
     Dosage: UNK, 1.5 TABLET BY MOUTH EVERY 8 HOURS
     Route: 048
  13. CARAFATE [Concomitant]
     Active Substance: SUCRALFATE
     Dosage: 10 ML, 4 TIMES DAILY (BEFORE MEALS AND NIGHTLY)
     Route: 048
  14. CYANOCOBALAMIN. [Concomitant]
     Active Substance: CYANOCOBALAMIN
     Dosage: 1000 UG/ML, SINGLE (INJECT 1000 MCG INTO THE MUSCLE ONCE)
     Route: 030
  15. ZOVIRAX [Concomitant]
     Active Substance: ACYCLOVIR
     Dosage: 400 MG, EVERY 4 HOURS (WHILE AWAKE)
     Route: 048
  16. CELEXA [Concomitant]
     Active Substance: CITALOPRAM HYDROBROMIDE
     Dosage: 10 MG, DAILY
     Route: 048
  17. FOLVITE [Concomitant]
     Active Substance: FOLIC ACID
     Dosage: 1 MG, DAILY
     Route: 048
  18. TENORMIN [Concomitant]
     Active Substance: ATENOLOL
     Dosage: 25 MG, 2X/DAY
     Route: 048
  19. ATIVAN [Concomitant]
     Active Substance: LORAZEPAM
     Indication: ANXIETY
     Dosage: 1 MG, EVERY 8 HOURS AS NEEDED
     Route: 048

REACTIONS (3)
  - Plasma cell myeloma [Unknown]
  - Post herpetic neuralgia [Unknown]
  - Herpes zoster [Unknown]

NARRATIVE: CASE EVENT DATE: 201703
